FAERS Safety Report 9148256 (Version 3)
Quarter: 2013Q2

REPORT INFORMATION
  Report Type: Spontaneous
  Country: US (occurrence: US)
  Receive Date: 20130308
  Receipt Date: 20130409
  Transmission Date: 20140414
  Serious: Yes (Other)
  Sender: FDA-Public Use
  Company Number: US-009507513-1303USA000658

PATIENT
  Age: 23 Year
  Sex: Male

DRUGS (5)
  1. EMEND FOR INJECTION [Suspect]
     Indication: PROPHYLAXIS OF NAUSEA AND VOMITING
     Dosage: 150 MG IN 100 ML OVER 20-25 MINUTES
     Route: 042
     Dates: start: 20130228, end: 20130228
  2. EMEND FOR INJECTION [Suspect]
     Dosage: UNK
     Dates: start: 201303
  3. ALOXI [Concomitant]
  4. DECADRON [Concomitant]
  5. BLEOMYCIN [Concomitant]

REACTIONS (3)
  - Injection site erythema [Recovering/Resolving]
  - Infusion site discomfort [Recovering/Resolving]
  - Infusion site induration [Recovering/Resolving]
